FAERS Safety Report 13712129 (Version 2)
Quarter: 2017Q3

REPORT INFORMATION
  Report Type: Spontaneous
  Country: US (occurrence: US)
  Receive Date: 20170703
  Receipt Date: 20170920
  Transmission Date: 20171127
  Serious: Yes (Hospitalization)
  Sender: FDA-Public Use
  Company Number: US-JNJFOC-20170501091

PATIENT
  Sex: Female

DRUGS (1)
  1. TOPAMAX [Suspect]
     Active Substance: TOPIRAMATE
     Indication: PRODUCT USED FOR UNKNOWN INDICATION
     Dosage: 100 MG 2 AND 1/2 TABLETS
     Route: 048

REACTIONS (4)
  - Seizure [Not Recovered/Not Resolved]
  - Emotional disorder [Not Recovered/Not Resolved]
  - Exposure during pregnancy [Unknown]
  - Lead dislodgement [Not Recovered/Not Resolved]
